FAERS Safety Report 4867207-0 (Version None)
Quarter: 2005Q4

REPORT INFORMATION
  Report Type: 
  Country: None (occurrence: None)
  Receive Date: 20051227
  Receipt Date: 20051227
  Transmission Date: 20060501
  Serious: Yes (Hospitalization)
  Sender: FDA-Public Use
  Company Number: None

PATIENT
  Age: 50 Year
  Sex: Female
  Weight: 123.4 kg

DRUGS (5)
  1. LODINE XL [Suspect]
  2. PROMETHAZINE HCL [Concomitant]
  3. RANITIDINE HCL [Concomitant]
  4. ETODOLAC [Concomitant]
  5. FAMOTIDINE [Concomitant]

REACTIONS (2)
  - NAUSEA [None]
  - VOMITING [None]
